FAERS Safety Report 7505775-0 (Version None)
Quarter: 2011Q2

REPORT INFORMATION
  Report Type: 
  Country: None (occurrence: None)
  Receive Date: 20110406
  Receipt Date: 20101015
  Transmission Date: 20111010
  Serious: Yes (Other)
  Sender: FDA-Public Use
  Company Number: APP201000799

PATIENT
  Age: 6 Year
  Sex: Female
  Weight: 25.855 kg

DRUGS (2)
  1. STERILE WATER FOR INJECTION IN PLASTIC CONTAINER [Suspect]
     Indication: MEDICATION DILUTION
     Dosage: 32.5 MG, ONCE, INTRAVENOUS
     Route: 042
     Dates: start: 20100922, end: 20100922
  2. CEFTRIAXON [Suspect]
     Indication: SEPSIS
     Dosage: 1300 MG, IN A PLASTIC CONTAINER, INTRAVENOUS
     Route: 042
     Dates: start: 20100922, end: 20100922

REACTIONS (1)
  - CHILLS [None]
